FAERS Safety Report 10432203 (Version 1)
Quarter: 2014Q3

REPORT INFORMATION
  Report Type: Spontaneous
  Country: US (occurrence: None)
  Receive Date: 20140904
  Receipt Date: 20140904
  Transmission Date: 20150326
  Serious: Yes (Other)
  Sender: FDA-Public Use
  Company Number: None

PATIENT
  Age: 40 Year
  Sex: Female
  Weight: 117.94 kg

DRUGS (1)
  1. FENTANYL TRANSDERMAL SYSTEM [Suspect]
     Active Substance: FENTANYL
     Indication: INTERVERTEBRAL DISC DEGENERATION
     Dosage: PAIN PATCH 72 HRS. APPLIED AS MEDICATED PATCH TO SKIN
     Dates: start: 20140709, end: 20140902

REACTIONS (1)
  - Type 2 diabetes mellitus [None]

NARRATIVE: CASE EVENT DATE: 20140830
